FAERS Safety Report 4887595-9 (Version None)
Quarter: 2006Q1

REPORT INFORMATION
  Report Type: 
  Country: None (occurrence: None)
  Receive Date: 20060119
  Receipt Date: 20060119
  Transmission Date: 20060701
  Serious: Yes (Hospitalization)
  Sender: FDA-Public Use
  Company Number: None

PATIENT
  Age: 65 Year
  Sex: Male

DRUGS (1)
  1. SERTRALINE [Suspect]
     Indication: DEPRESSION
     Dosage: 100 MG PO QD
     Route: 048

REACTIONS (4)
  - HYPONATRAEMIA [None]
  - MEMORY IMPAIRMENT [None]
  - ORAL INTAKE REDUCED [None]
  - URINARY RETENTION [None]
